FAERS Safety Report 8841839 (Version 1)
Quarter: 2012Q4

REPORT INFORMATION
  Report Type: 
  Country: US (occurrence: US)
  Receive Date: 20121016
  Receipt Date: 20121016
  Transmission Date: 20130627
  Serious: Yes (Hospitalization, Other)
  Sender: FDA-Public Use
  Company Number: US-SANOFI-AVENTIS-2012SA073149

PATIENT
  Age: 59 Year
  Sex: Male

DRUGS (4)
  1. GLIMEPIRIDE [Suspect]
     Route: 048
  2. GLYBURIDE [Suspect]
     Route: 048
  3. METFORMIN [Suspect]
     Route: 065
  4. PIOGLITAZONE [Suspect]
     Route: 065

REACTIONS (3)
  - Cardiac operation [Unknown]
  - Cerebrovascular accident [Unknown]
  - Blood glucose fluctuation [Unknown]
